FAERS Safety Report 6155264-3 (Version None)
Quarter: 2009Q2

REPORT INFORMATION
  Report Type: 
  Country: None (occurrence: None)
  Receive Date: 20090415
  Receipt Date: 20090409
  Transmission Date: 20091009
  Serious: Yes (Hospitalization)
  Sender: FDA-Public Use
  Company Number: JP-ASTRAZENECA-2009SE01367

PATIENT
  Age: 34739 Day
  Sex: Female
  Weight: 48 kg

DRUGS (8)
  1. ECARD COMBINATION TABLETS HD [Suspect]
     Indication: HYPERTENSION
     Route: 048
     Dates: start: 20090318, end: 20090324
  2. GASRICK [Concomitant]
     Indication: PROPHYLAXIS
     Route: 048
     Dates: start: 20080331
  3. CLARITH [Concomitant]
     Indication: PROPHYLAXIS
     Route: 048
     Dates: start: 20080331
  4. MAGNESIUM OXIDE [Concomitant]
     Indication: DYSCHEZIA
     Route: 048
     Dates: start: 20080331
  5. SAWADOL TAPE [Concomitant]
     Indication: HYPERTENSION
     Route: 062
     Dates: start: 20080331
  6. AZOLITAN [Concomitant]
     Indication: ANXIETY
     Route: 048
     Dates: start: 20080331
  7. ALONIX [Concomitant]
     Indication: HYPERTENSION
     Route: 048
     Dates: start: 20090304
  8. LENIMEC [Concomitant]
     Indication: HYPERTENSION
     Route: 048
     Dates: start: 20080331

REACTIONS (1)
  - CARDIAC FAILURE [None]
